FAERS Safety Report 5656760-5 (Version None)
Quarter: 2008Q1

REPORT INFORMATION
  Report Type: 
  Country: None (occurrence: None)
  Receive Date: 20080310
  Receipt Date: 20080305
  Transmission Date: 20080703
  Serious: Yes (Death, Hospitalization, Other)
  Sender: FDA-Public Use
  Company Number: AU-NOVOPROD-272861

PATIENT
  Sex: Male
  Weight: 2.65 kg

DRUGS (20)
  1. NOVOSEVEN [Suspect]
     Indication: DRUG USE FOR UNKNOWN INDICATION
     Dosage: .35 MG, UNK
     Dates: start: 20080123
  2. NOVOSEVEN [Suspect]
     Dosage: .15 UNK, UNK
     Dates: start: 20080123
  3. NOVOSEVEN [Suspect]
     Dosage: .45 UNK, UNK
     Dates: start: 20080123
  4. NOVOSEVEN [Suspect]
     Dosage: .49 UNK, UNK
     Dates: start: 20080123
  5. NOVOSEVEN [Suspect]
     Dosage: .48 UNK, UNK
     Dates: start: 20080124
  6. NOVOSEVEN [Suspect]
     Dosage: .5 UNK, UNK
     Dates: start: 20080124
  7. BLOOD CELLS, PACKED HUMAN [Concomitant]
     Dosage: BEFORE DOSE 1
  8. BLOOD CELLS, PACKED HUMAN [Concomitant]
     Dosage: AFTER DOSE 1
  9. BLOOD CELLS, PACKED HUMAN [Concomitant]
     Dosage: AFTER DOSE 2
  10. FRESH FROZEN PLASMA [Concomitant]
     Dosage: BEFORE DOSE 1
  11. FRESH FROZEN PLASMA [Concomitant]
     Dosage: AFTER DOSE 1
  12. FRESH FROZEN PLASMA [Concomitant]
     Dosage: AFTER DOSE 2
  13. CRYOPRECIPITATES [Concomitant]
     Dosage: BEFORE DOSE 1
  14. CRYOPRECIPITATES [Concomitant]
     Dosage: AFTER DOSE 1
  15. CRYOPRECIPITATES [Concomitant]
     Dosage: AFTER DOSE 2
  16. CRYOPRECIPITATES [Concomitant]
     Dosage: AFTER DOSE 3
  17. PLATELETS [Concomitant]
     Dosage: BEFORE DOSE 1
  18. PLATELETS [Concomitant]
     Dosage: AFTER DOSE 1
  19. PLATELETS [Concomitant]
     Dosage: AFTER DOSE 2
  20. ALBUMEX 20 [Concomitant]

REACTIONS (2)
  - CATHETER THROMBOSIS [None]
  - MULTI-ORGAN FAILURE [None]
